FAERS Safety Report 7747237-1 (Version None)
Quarter: 2011Q3

REPORT INFORMATION
  Report Type: 
  Country: None (occurrence: None)
  Receive Date: 20110913
  Receipt Date: 20110908
  Transmission Date: 20111222
  Serious: Yes (Life-Threatening, Hospitalization, Disabling)
  Sender: FDA-Public Use
  Company Number: CA-BAYER-2011-064402

PATIENT
  Age: 12 Year
  Sex: Female
  Weight: 72.9 kg

DRUGS (1)
  1. YAZ [Suspect]
     Indication: DYSMENORRHOEA
     Dosage: 1 DF, QD
     Route: 048
     Dates: start: 20101005, end: 20110210

REACTIONS (9)
  - PHOTOPHOBIA [None]
  - MIGRAINE [None]
  - PRURITUS [None]
  - MUSCULAR WEAKNESS [None]
  - PAIN IN EXTREMITY [None]
  - NAUSEA [None]
  - HEADACHE [None]
  - PHONOPHOBIA [None]
  - PARAESTHESIA [None]
